FAERS Safety Report 16742994 (Version 2)
Quarter: 2019Q4

REPORT INFORMATION
  Report Type: Spontaneous
  Country: DE (occurrence: DE)
  Receive Date: 20190827
  Receipt Date: 20191015
  Transmission Date: 20200122
  Serious: Yes (Death, Hospitalization, Other)
  Sender: FDA-Public Use
  Company Number: DE-SANOFI-AVENTIS-2012SA052872

PATIENT
  Age: 68 Year
  Sex: Female

DRUGS (7)
  1. THYMOGLOBULIN [Suspect]
     Active Substance: LAPINE T-LYMPHOCYTE IMMUNE GLOBULIN
     Indication: IMMUNOSUPPRESSION
     Dosage: UNK
  2. PREDNISOLONE. [Suspect]
     Active Substance: PREDNISOLONE
     Dosage: 500 MG
  3. TACROLIMUS. [Suspect]
     Active Substance: TACROLIMUS
     Indication: IMMUNOSUPPRESSION
     Dosage: UNK UNK,UNK
     Route: 065
  4. PREDNISOLONE. [Suspect]
     Active Substance: PREDNISOLONE
     Indication: IMMUNOSUPPRESSION
     Dosage: UNK UNK,UNK
     Route: 065
  5. HALOPERIDOL. [Concomitant]
     Active Substance: HALOPERIDOL
     Indication: SCHIZOID PERSONALITY DISORDER
     Dosage: UNK
  6. AZATHIOPRINE. [Suspect]
     Active Substance: AZATHIOPRINE
     Indication: IMMUNOSUPPRESSION
     Dosage: UNK UNK,UNK
     Route: 065
  7. RITUXIMAB. [Suspect]
     Active Substance: RITUXIMAB
     Indication: IMMUNOSUPPRESSION
     Dosage: UNK

REACTIONS (20)
  - Angiopathy [Fatal]
  - Respiratory failure [Fatal]
  - Infection reactivation [Fatal]
  - Cough decreased [Fatal]
  - Hypertonia [Fatal]
  - Disturbance in attention [Fatal]
  - CSF protein increased [Fatal]
  - Coordination abnormal [Fatal]
  - Chills [Fatal]
  - Pleocytosis [Fatal]
  - Varicella zoster virus infection [Fatal]
  - CSF cell count increased [Fatal]
  - Areflexia [Fatal]
  - Somnolence [Fatal]
  - Blood lactate dehydrogenase increased [Fatal]
  - Tremor [Fatal]
  - C-reactive protein increased [Fatal]
  - Pneumonia [Fatal]
  - Meningoencephalitis viral [Fatal]
  - CSF glucose decreased [Fatal]
